FAERS Safety Report 8419811-0 (Version None)
Quarter: 2012Q2

REPORT INFORMATION
  Report Type: 
  Country: None (occurrence: None)
  Receive Date: 20120607
  Receipt Date: 20120531
  Transmission Date: 20120825
  Serious: Yes (Disabling, Other)
  Sender: FDA-Public Use
  Company Number: PHHY2012TR047906

PATIENT
  Age: 55 Year
  Sex: Male

DRUGS (2)
  1. CYCLOSPORINE [Suspect]
     Indication: RENAL TRANSPLANT
  2. AZATHIOPRINE [Suspect]
     Indication: RENAL TRANSPLANT

REACTIONS (2)
  - EPILEPSY [None]
  - CEREBROVASCULAR ACCIDENT [None]
